FAERS Safety Report 14629606 (Version 1)
Quarter: 2018Q1

REPORT INFORMATION
  Report Type: Spontaneous
  Country: US (occurrence: US)
  Receive Date: 20180312
  Receipt Date: 20180312
  Transmission Date: 20180509
  Serious: Yes (Other)
  Sender: FDA-Public Use
  Company Number: None

PATIENT

DRUGS (2)
  1. METHOHEXITAL [Suspect]
     Active Substance: METHOHEXITAL
     Indication: HYPNOTHERAPY
     Route: 040
     Dates: start: 20180201, end: 20180309
  2. METHOHEXITAL [Suspect]
     Active Substance: METHOHEXITAL
     Indication: ELECTROCONVULSIVE THERAPY
     Route: 040
     Dates: start: 20180201, end: 20180309

REACTIONS (3)
  - Anaesthetic complication [None]
  - Delayed recovery from anaesthesia [None]
  - Product quality issue [None]
